FAERS Safety Report 20015568 (Version 1)
Quarter: 2021Q4

REPORT INFORMATION
  Report Type: Spontaneous
  Country: ZA (occurrence: None)
  Receive Date: 20211101
  Receipt Date: 20211101
  Transmission Date: 20220303
  Serious: Yes (Disabling)
  Sender: FDA-Public Use
  Company Number: None

PATIENT
  Age: 38 Year
  Sex: Male
  Weight: 81 kg

DRUGS (2)
  1. DIAZEPAM [Suspect]
     Active Substance: DIAZEPAM
     Indication: Anxiety
     Dosage: FREQUENCY : EVERY 8 HOURS;?
     Route: 048
  2. DIAZEPAM [Suspect]
     Active Substance: DIAZEPAM
     Indication: Panic attack

REACTIONS (7)
  - Somnolence [None]
  - Sedation [None]
  - Pain in extremity [None]
  - Burning sensation [None]
  - Inflammation [None]
  - Dysuria [None]
  - Pollakiuria [None]

NARRATIVE: CASE EVENT DATE: 20211012
